FAERS Safety Report 4658412-7 (Version None)
Quarter: 2005Q2

REPORT INFORMATION
  Report Type: 
  Country: None (occurrence: None)
  Receive Date: 20050502
  Receipt Date: 20050502
  Transmission Date: 20051028
  Serious: No
  Sender: FDA-Public Use
  Company Number: None

PATIENT
  Age: 60 Year
  Sex: Female
  Weight: 105.6881 kg

DRUGS (4)
  1. DEXTROSE 5% IN LACTATED RINGER'S [Suspect]
     Indication: THERAPEUTIC PROCEDURE
     Dosage: 700CC  IV
     Route: 042
     Dates: start: 20050412
  2. PROPOFOL [Concomitant]
  3. ANECTINE [Concomitant]
  4. LEVAQUIN [Concomitant]

REACTIONS (1)
  - BLOOD PRESSURE DECREASED [None]
